FAERS Safety Report 9358183 (Version 1)
Quarter: 2013Q2

REPORT INFORMATION
  Report Type: Spontaneous
  Country: US (occurrence: US)
  Receive Date: 20130620
  Receipt Date: 20130620
  Transmission Date: 20140414
  Serious: No
  Sender: FDA-Public Use
  Company Number: US-PFIZER INC-2013182531

PATIENT
  Sex: Male

DRUGS (7)
  1. MORPHINE SULFATE [Suspect]
     Dosage: UNK
  2. DILANTIN [Suspect]
     Dosage: UNK
  3. CODEINE SULFATE [Suspect]
     Dosage: UNK
  4. KEPPRA [Suspect]
     Dosage: UNK
  5. PERCOCET [Suspect]
     Dosage: UNK
  6. SUDAFED [Suspect]
     Dosage: UNK
  7. ULTRAM [Suspect]
     Dosage: UNK

REACTIONS (1)
  - Drug hypersensitivity [Unknown]
